FAERS Safety Report 9056488 (Version 1)
Quarter: 2013Q1

REPORT INFORMATION
  Report Type: Spontaneous
  Country: US (occurrence: US)
  Receive Date: 20130204
  Receipt Date: 20130204
  Transmission Date: 20140127
  Serious: No
  Sender: FDA-Public Use
  Company Number: US-PFIZER INC-2013045234

PATIENT
  Sex: Female

DRUGS (1)
  1. ADVIL [Suspect]
     Indication: ORAL PAIN
     Dosage: 2 TABLETS, EVERY EIGHT HOURS
     Route: 048

REACTIONS (3)
  - Drug ineffective [Unknown]
  - Pain [Unknown]
  - Arthralgia [Unknown]
